FAERS Safety Report 8212690-6 (Version None)
Quarter: 2012Q1

REPORT INFORMATION
  Report Type: 
  Country: None (occurrence: None)
  Receive Date: 20120228
  Receipt Date: 20111114
  Transmission Date: 20120608
  Serious: Yes (Hospitalization, Other)
  Sender: FDA-Public Use
  Company Number: RB-34290-2011

PATIENT
  Age: 41 Year
  Sex: Male

DRUGS (1)
  1. SUBOXONE [Suspect]
     Indication: PAIN
     Dosage: (SUBLINGUAL)
     Route: 060

REACTIONS (2)
  - ROAD TRAFFIC ACCIDENT [None]
  - COMA [None]
